FAERS Safety Report 4269472-X (Version None)
Quarter: 2004Q1

REPORT INFORMATION
  Report Type: 
  Country: None (occurrence: None)
  Receive Date: 20040112
  Receipt Date: 20040112
  Transmission Date: 20041129
  Serious: Yes (Hospitalization)
  Sender: FDA-Public Use
  Company Number: None

PATIENT
  Age: 75 Year
  Sex: Male

DRUGS (6)
  1. ASPIRIN [Suspect]
     Indication: CORONARY ARTERY DISEASE
     Dosage: 325 MG QD
     Dates: start: 20030329
  2. ASPIRIN [Suspect]
     Indication: PROPHYLAXIS
     Dosage: 325 MG QD
     Dates: start: 20030329
  3. NITROFORANTOIN [Concomitant]
  4. PROMETHAZINE [Concomitant]
  5. EPOGEN [Concomitant]
  6. HYDROXYUREA [Concomitant]

REACTIONS (1)
  - GASTROINTESTINAL ULCER [None]
